FAERS Safety Report 17979129 (Version 5)
Quarter: 2020Q4

REPORT INFORMATION
  Report Type: Report from Study
  Country: JP (occurrence: JP)
  Receive Date: 20200703
  Receipt Date: 20201015
  Transmission Date: 20210113
  Serious: Yes (Life-Threatening, Hospitalization)
  Sender: FDA-Public Use
  Company Number: JP-SAKK-2020SA157274AA

PATIENT

DRUGS (68)
  1. CAPLACIZUMAB [Suspect]
     Active Substance: CAPLACIZUMAB
     Indication: THROMBOTIC THROMBOCYTOPENIC PURPURA
     Dosage: 10 MG/DAY
     Route: 042
     Dates: start: 20200602, end: 20200602
  2. CAPLACIZUMAB [Suspect]
     Active Substance: CAPLACIZUMAB
     Dosage: 10 MG/DAY
     Route: 058
     Dates: start: 20200602, end: 20200602
  3. CAPLACIZUMAB [Suspect]
     Active Substance: CAPLACIZUMAB
     Dosage: 10 MG/DAY
     Route: 058
     Dates: start: 20200605, end: 20200605
  4. CAPLACIZUMAB [Suspect]
     Active Substance: CAPLACIZUMAB
     Dosage: 10 MG/DAY
     Route: 058
     Dates: start: 20200608, end: 20200608
  5. CAPLACIZUMAB [Suspect]
     Active Substance: CAPLACIZUMAB
     Dosage: 10 MG/DAY
     Route: 058
     Dates: start: 20200608, end: 20200608
  6. CAPLACIZUMAB [Suspect]
     Active Substance: CAPLACIZUMAB
     Dosage: 10 MG/DAY
     Route: 058
     Dates: start: 20200612, end: 20200612
  7. CAPLACIZUMAB [Suspect]
     Active Substance: CAPLACIZUMAB
     Dosage: 10 MG/DAY
     Route: 058
     Dates: start: 20200612, end: 20200612
  8. CAPLACIZUMAB [Suspect]
     Active Substance: CAPLACIZUMAB
     Dosage: 10 MG/DAY
     Route: 058
     Dates: start: 20200615, end: 20200615
  9. CAPLACIZUMAB [Suspect]
     Active Substance: CAPLACIZUMAB
     Dosage: 10 MG/DAY
     Route: 058
     Dates: start: 20200619, end: 20200625
  10. CAPLACIZUMAB [Suspect]
     Active Substance: CAPLACIZUMAB
     Dosage: 10 MG/DAY
     Route: 058
     Dates: start: 20200602, end: 20200602
  11. CAPLACIZUMAB [Suspect]
     Active Substance: CAPLACIZUMAB
     Dosage: 10 MG/DAY
     Route: 058
     Dates: start: 20200604, end: 20200604
  12. CAPLACIZUMAB [Suspect]
     Active Substance: CAPLACIZUMAB
     Dosage: 10 MG/DAY
     Route: 058
     Dates: start: 20200605, end: 20200605
  13. CAPLACIZUMAB [Suspect]
     Active Substance: CAPLACIZUMAB
     Dosage: 10 MG/DAY
     Route: 058
     Dates: start: 20200607, end: 20200607
  14. CAPLACIZUMAB [Suspect]
     Active Substance: CAPLACIZUMAB
     Dosage: 10 MG/DAY
     Route: 058
     Dates: start: 20200611, end: 20200611
  15. CAPLACIZUMAB [Suspect]
     Active Substance: CAPLACIZUMAB
     Dosage: 10 MG/DAY
     Route: 058
     Dates: start: 20200611, end: 20200611
  16. CAPLACIZUMAB [Suspect]
     Active Substance: CAPLACIZUMAB
     Dosage: 10 MG/DAY
     Route: 058
     Dates: start: 20200615, end: 20200615
  17. CAPLACIZUMAB [Suspect]
     Active Substance: CAPLACIZUMAB
     Dosage: 10 MG/DAY
     Route: 058
     Dates: start: 20200619, end: 20200625
  18. CAPLACIZUMAB [Suspect]
     Active Substance: CAPLACIZUMAB
     Dosage: 10 MG/DAY
     Route: 058
     Dates: start: 20200604, end: 20200604
  19. CAPLACIZUMAB [Suspect]
     Active Substance: CAPLACIZUMAB
     Dosage: 10 MG/DAY
     Route: 058
     Dates: start: 20200604, end: 20200604
  20. CAPLACIZUMAB [Suspect]
     Active Substance: CAPLACIZUMAB
     Dosage: 10 MG/DAY
     Route: 058
     Dates: start: 20200607, end: 20200607
  21. CAPLACIZUMAB [Suspect]
     Active Substance: CAPLACIZUMAB
     Dosage: 10 MG/DAY
     Route: 058
     Dates: start: 20200607, end: 20200607
  22. CAPLACIZUMAB [Suspect]
     Active Substance: CAPLACIZUMAB
     Dosage: 10 MG/DAY
     Route: 058
     Dates: start: 20200612, end: 20200612
  23. CAPLACIZUMAB [Suspect]
     Active Substance: CAPLACIZUMAB
     Dosage: 10 MG/DAY
     Route: 058
     Dates: start: 20200613, end: 20200613
  24. CAPLACIZUMAB [Suspect]
     Active Substance: CAPLACIZUMAB
     Indication: THROMBOTIC THROMBOCYTOPENIC PURPURA
     Dosage: 10 MG/DAY
     Route: 042
     Dates: start: 20200602, end: 20200602
  25. CAPLACIZUMAB [Suspect]
     Active Substance: CAPLACIZUMAB
     Dosage: 10 MG/DAY
     Route: 058
     Dates: start: 20200602, end: 20200602
  26. CAPLACIZUMAB [Suspect]
     Active Substance: CAPLACIZUMAB
     Dosage: 10 MG/DAY
     Route: 058
     Dates: start: 20200605, end: 20200605
  27. CAPLACIZUMAB [Suspect]
     Active Substance: CAPLACIZUMAB
     Dosage: 10 MG/DAY
     Route: 058
     Dates: start: 20200606, end: 20200606
  28. CAPLACIZUMAB [Suspect]
     Active Substance: CAPLACIZUMAB
     Dosage: 10 MG/DAY
     Route: 058
     Dates: start: 20200606, end: 20200606
  29. CAPLACIZUMAB [Suspect]
     Active Substance: CAPLACIZUMAB
     Dosage: 10 MG/DAY
     Route: 058
     Dates: start: 20200610, end: 20200610
  30. CAPLACIZUMAB [Suspect]
     Active Substance: CAPLACIZUMAB
     Dosage: 10 MG/DAY
     Route: 058
     Dates: start: 20200611, end: 20200611
  31. CAPLACIZUMAB [Suspect]
     Active Substance: CAPLACIZUMAB
     Dosage: 10 MG/DAY
     Route: 058
     Dates: start: 20200612, end: 20200612
  32. CAPLACIZUMAB [Suspect]
     Active Substance: CAPLACIZUMAB
     Dosage: 10 MG/DAY
     Route: 058
     Dates: start: 20200613, end: 20200613
  33. CAPLACIZUMAB [Suspect]
     Active Substance: CAPLACIZUMAB
     Dosage: 10 MG/DAY
     Route: 058
     Dates: start: 20200614, end: 20200614
  34. CAPLACIZUMAB [Suspect]
     Active Substance: CAPLACIZUMAB
     Dosage: 10 MG/DAY
     Route: 058
     Dates: start: 20200614, end: 20200614
  35. CAPLACIZUMAB [Suspect]
     Active Substance: CAPLACIZUMAB
     Dosage: 10 MG/DAY
     Route: 058
     Dates: start: 20200615, end: 20200615
  36. CAPLACIZUMAB [Suspect]
     Active Substance: CAPLACIZUMAB
     Indication: THROMBOTIC THROMBOCYTOPENIC PURPURA
     Dosage: 10 MG/DAY
     Route: 042
     Dates: start: 20200602, end: 20200602
  37. CAPLACIZUMAB [Suspect]
     Active Substance: CAPLACIZUMAB
     Dosage: 10 MG/DAY
     Route: 058
     Dates: start: 20200608, end: 20200608
  38. CAPLACIZUMAB [Suspect]
     Active Substance: CAPLACIZUMAB
     Dosage: 10 MG/DAY
     Route: 058
     Dates: start: 20200609, end: 20200609
  39. CAPLACIZUMAB [Suspect]
     Active Substance: CAPLACIZUMAB
     Dosage: 10 MG/DAY
     Route: 058
     Dates: start: 20200614, end: 20200614
  40. CAPLACIZUMAB [Suspect]
     Active Substance: CAPLACIZUMAB
     Dosage: 10 MG/DAY
     Route: 058
     Dates: start: 20200603, end: 20200603
  41. CAPLACIZUMAB [Suspect]
     Active Substance: CAPLACIZUMAB
     Dosage: 10 MG/DAY
     Route: 058
     Dates: start: 20200603, end: 20200603
  42. CAPLACIZUMAB [Suspect]
     Active Substance: CAPLACIZUMAB
     Dosage: 10 MG/DAY
     Route: 058
     Dates: start: 20200605, end: 20200605
  43. CAPLACIZUMAB [Suspect]
     Active Substance: CAPLACIZUMAB
     Dosage: 10 MG/DAY
     Route: 058
     Dates: start: 20200607, end: 20200607
  44. CAPLACIZUMAB [Suspect]
     Active Substance: CAPLACIZUMAB
     Dosage: 10 MG/DAY
     Route: 058
     Dates: start: 20200609, end: 20200609
  45. CAPLACIZUMAB [Suspect]
     Active Substance: CAPLACIZUMAB
     Dosage: 10 MG/DAY
     Route: 058
     Dates: start: 20200616, end: 20200616
  46. CAPLACIZUMAB [Suspect]
     Active Substance: CAPLACIZUMAB
     Dosage: 10 MG/DAY
     Route: 058
     Dates: start: 20200619, end: 20200625
  47. CAPLACIZUMAB [Suspect]
     Active Substance: CAPLACIZUMAB
     Indication: THROMBOTIC THROMBOCYTOPENIC PURPURA
     Dosage: 10 MG/DAY
     Route: 042
     Dates: start: 20200602, end: 20200602
  48. CAPLACIZUMAB [Suspect]
     Active Substance: CAPLACIZUMAB
     Dosage: 10 MG/DAY
     Route: 058
     Dates: start: 20200602, end: 20200602
  49. CAPLACIZUMAB [Suspect]
     Active Substance: CAPLACIZUMAB
     Dosage: 10 MG/DAY
     Route: 058
     Dates: start: 20200603, end: 20200603
  50. CAPLACIZUMAB [Suspect]
     Active Substance: CAPLACIZUMAB
     Dosage: 10 MG/DAY
     Route: 058
     Dates: start: 20200606, end: 20200606
  51. CAPLACIZUMAB [Suspect]
     Active Substance: CAPLACIZUMAB
     Dosage: 10 MG/DAY
     Route: 058
     Dates: start: 20200606, end: 20200606
  52. CAPLACIZUMAB [Suspect]
     Active Substance: CAPLACIZUMAB
     Dosage: 10 MG/DAY
     Route: 058
     Dates: start: 20200608, end: 20200608
  53. CAPLACIZUMAB [Suspect]
     Active Substance: CAPLACIZUMAB
     Dosage: 10 MG/DAY
     Route: 058
     Dates: start: 20200609, end: 20200609
  54. CAPLACIZUMAB [Suspect]
     Active Substance: CAPLACIZUMAB
     Dosage: 10 MG/DAY
     Route: 058
     Dates: start: 20200610, end: 20200610
  55. CAPLACIZUMAB [Suspect]
     Active Substance: CAPLACIZUMAB
     Dosage: 10 MG/DAY
     Route: 058
     Dates: start: 20200610, end: 20200610
  56. CAPLACIZUMAB [Suspect]
     Active Substance: CAPLACIZUMAB
     Dosage: 10 MG/DAY
     Route: 058
     Dates: start: 20200610, end: 20200610
  57. CAPLACIZUMAB [Suspect]
     Active Substance: CAPLACIZUMAB
     Dosage: 10 MG/DAY
     Route: 058
     Dates: start: 20200611, end: 20200611
  58. CAPLACIZUMAB [Suspect]
     Active Substance: CAPLACIZUMAB
     Dosage: 10 MG/DAY
     Route: 058
     Dates: start: 20200614, end: 20200614
  59. CAPLACIZUMAB [Suspect]
     Active Substance: CAPLACIZUMAB
     Dosage: 10 MG/DAY
     Route: 058
     Dates: start: 20200615, end: 20200615
  60. CAPLACIZUMAB [Suspect]
     Active Substance: CAPLACIZUMAB
     Dosage: 10 MG/DAY
     Route: 058
     Dates: start: 20200603, end: 20200603
  61. CAPLACIZUMAB [Suspect]
     Active Substance: CAPLACIZUMAB
     Dosage: 10 MG/DAY
     Route: 058
     Dates: start: 20200604, end: 20200604
  62. CAPLACIZUMAB [Suspect]
     Active Substance: CAPLACIZUMAB
     Dosage: 10 MG/DAY
     Route: 058
     Dates: start: 20200609, end: 20200609
  63. CAPLACIZUMAB [Suspect]
     Active Substance: CAPLACIZUMAB
     Dosage: 10 MG/DAY
     Route: 058
     Dates: start: 20200613, end: 20200613
  64. CAPLACIZUMAB [Suspect]
     Active Substance: CAPLACIZUMAB
     Dosage: 10 MG/DAY
     Route: 058
     Dates: start: 20200613, end: 20200613
  65. CAPLACIZUMAB [Suspect]
     Active Substance: CAPLACIZUMAB
     Dosage: 10 MG/DAY
     Route: 058
     Dates: start: 20200616, end: 20200616
  66. CAPLACIZUMAB [Suspect]
     Active Substance: CAPLACIZUMAB
     Dosage: 10 MG/DAY
     Route: 058
     Dates: start: 20200616, end: 20200616
  67. CAPLACIZUMAB [Suspect]
     Active Substance: CAPLACIZUMAB
     Dosage: 10 MG/DAY
     Route: 058
     Dates: start: 20200616, end: 20200616
  68. CAPLACIZUMAB [Suspect]
     Active Substance: CAPLACIZUMAB
     Dosage: 10 MG/DAY
     Route: 058
     Dates: start: 20200619, end: 20200625

REACTIONS (2)
  - Pulmonary alveolar haemorrhage [Recovering/Resolving]
  - Cholecystitis acute [Recovered/Resolved]

NARRATIVE: CASE EVENT DATE: 20200617
